FAERS Safety Report 5057939-6 (Version None)
Quarter: 2006Q3

REPORT INFORMATION
  Report Type: 
  Country: None (occurrence: None)
  Receive Date: 20060721
  Receipt Date: 20060404
  Transmission Date: 20061208
  Serious: No
  Sender: FDA-Public Use
  Company Number: 2006PV009808

PATIENT
  Age: 74 Year
  Sex: Male

DRUGS (4)
  1. AVANDIA [Suspect]
     Indication: DRUG USE FOR UNKNOWN INDICATION
     Dosage: 4MG PER DAY
     Route: 048
     Dates: start: 20050101
  2. BYETTA [Suspect]
     Dosage: 10MCG TWICE PER DAY
     Route: 058
     Dates: start: 20060119
  3. METFORMIN [Concomitant]
     Dates: start: 19860101
  4. STARLIX [Concomitant]
     Dates: end: 20060119

REACTIONS (2)
  - BLOOD GLUCOSE INCREASED [None]
  - OEDEMA PERIPHERAL [None]
